FAERS Safety Report 7690804-4 (Version None)
Quarter: 2011Q3

REPORT INFORMATION
  Report Type: 
  Country: None (occurrence: None)
  Receive Date: 20110818
  Receipt Date: 20110805
  Transmission Date: 20111222
  Serious: Yes (Life-Threatening, Hospitalization)
  Sender: FDA-Public Use
  Company Number: GB-SANOFI-AVENTIS-2011SA050518

PATIENT
  Age: 82 Year
  Sex: Male
  Weight: 81 kg

DRUGS (9)
  1. FUROSEMIDE [Concomitant]
     Route: 065
  2. ZOLADEX [Concomitant]
     Route: 065
  3. ATORVASTATIN [Concomitant]
     Route: 065
  4. NICORANDIL [Concomitant]
     Route: 065
  5. AMIODARONE HCL [Concomitant]
     Route: 065
  6. ASPIRIN [Concomitant]
     Route: 065
  7. DRONEDARONE HCL [Suspect]
     Route: 065
     Dates: start: 20110727
  8. AMLODIPINE [Concomitant]
     Route: 065
  9. RAMIPRIL [Concomitant]
     Route: 065

REACTIONS (1)
  - ARRHYTHMIA [None]
